FAERS Safety Report 5162204-2 (Version None)
Quarter: 2006Q4

REPORT INFORMATION
  Report Type: 
  Country: None (occurrence: None)
  Receive Date: 20061121
  Receipt Date: 20061110
  Transmission Date: 20070319
  Serious: Yes (Other)
  Sender: FDA-Public Use
  Company Number: 225187

PATIENT
  Sex: Female

DRUGS (1)
  1. AVASTIN [Suspect]
     Indication: MACULAR DEGENERATION
     Dosage: INTRAVITREAL
     Dates: start: 20060419

REACTIONS (2)
  - PHARMACEUTICAL PRODUCT COMPLAINT [None]
  - VITRITIS [None]
